FAERS Safety Report 12960948 (Version 2)
Quarter: 2016Q4

REPORT INFORMATION
  Report Type: Spontaneous
  Country: RU (occurrence: RU)
  Receive Date: 20161121
  Receipt Date: 20161121
  Transmission Date: 20170207
  Serious: Yes (Other)
  Sender: FDA-Public Use
  Company Number: RU-BAYER-2016-214242

PATIENT
  Age: 40 Year
  Sex: Female

DRUGS (9)
  1. CLARITINE [Concomitant]
     Active Substance: LORATADINE
     Dosage: 10 MG, QD
     Dates: start: 20161001, end: 20161007
  2. FLUIFORT [Concomitant]
     Dosage: 1 DF, QD
  3. YAZ PLUS [Suspect]
     Active Substance: DROSPIRENONE\ETHINYL ESTRADIOL
     Indication: CONTRACEPTION
     Dosage: UNK
     Route: 048
     Dates: start: 201609, end: 20161102
  4. DE-NOL [Concomitant]
     Dosage: 120 MG, QID
     Dates: start: 20161001, end: 20161013
  5. PARIET [Concomitant]
     Active Substance: RABEPRAZOLE SODIUM
     Dosage: 20 MG, BID
     Dates: start: 20161001, end: 20161013
  6. LINEX [Concomitant]
     Active Substance: LACTOBACILLUS ACIDOPHILUS
     Dosage: 1 DF, BID
     Dates: start: 20161001, end: 20161013
  7. FLEMOXIN [Concomitant]
     Dosage: 1000 MG, BID
     Dates: start: 20161001, end: 20161010
  8. KLACID [Concomitant]
     Active Substance: CLARITHROMYCIN
     Dosage: 500 MG, BID
     Dates: start: 20161001, end: 20161010
  9. BIFI-FORM [Concomitant]
     Dosage: 1 DF, BID
     Dates: start: 20161001, end: 20161013

REACTIONS (9)
  - Depressed mood [Recovered/Resolved]
  - Anxiety [Recovered/Resolved]
  - Metrorrhagia [None]
  - Apathy [Recovered/Resolved]
  - Tracheobronchitis [None]
  - Suicidal ideation [Recovered/Resolved]
  - Nasopharyngitis [None]
  - Abdominal pain lower [None]
  - Somnolence [None]

NARRATIVE: CASE EVENT DATE: 20161025
